FAERS Safety Report 9632787 (Version 5)
Quarter: 2013Q4

REPORT INFORMATION
  Report Type: Report from Study
  Country: DE (occurrence: DE)
  Receive Date: 20131018
  Receipt Date: 20131216
  Transmission Date: 20140711
  Serious: Yes (Hospitalization)
  Sender: FDA-Public Use
  Company Number: DE-VERTEX PHARMACEUTICALS INC-2013-009260

PATIENT
  Age: 43 Year
  Sex: Female
  Weight: 60 kg

DRUGS (23)
  1. VX-809 FDC [Suspect]
     Indication: CYSTIC FIBROSIS
     Dosage: 600 MG, QD
     Route: 048
     Dates: start: 20130822, end: 20130830
  2. VX-770 FDC [Suspect]
     Indication: CYSTIC FIBROSIS
     Dosage: 250 MG, QAM
     Route: 048
     Dates: start: 20130822, end: 20130830
  3. VX-770 [Suspect]
     Indication: CYSTIC FIBROSIS
     Dosage: 250 MG, QPM
     Route: 048
     Dates: start: 20130822, end: 20130830
  4. ITRACONAZOLE [Suspect]
     Dosage: 100 MG, BID
     Dates: start: 20130822, end: 20130830
  5. NACL [Concomitant]
     Dosage: 5 ML, BID
     Route: 055
  6. COLISTIN [Concomitant]
     Dosage: 1000000 IU, QD
     Route: 055
  7. AZTREONAM [Concomitant]
     Dosage: 75 MG, TID
     Route: 055
  8. MANNITOL [Concomitant]
     Dosage: 400 MG, BID
     Route: 055
  9. URSODESOXYCHOLIC ACID [Concomitant]
     Dosage: 500 MG, BID
     Route: 048
  10. PANCREATIN [Concomitant]
     Dosage: 25000 IU, QD
  11. VITAMIN D [Concomitant]
     Dosage: 1000 DF, QD
     Route: 048
  12. ACETYLCYSTEIN [Concomitant]
     Dosage: 600 MG, BID
     Route: 048
  13. TIOTROPIUM BROMIDE [Concomitant]
     Dosage: 2.5 MG, QD
     Route: 055
  14. AMITRIPTYLINE [Concomitant]
     Dosage: 20 MG, QD
     Route: 048
  15. CREON 25000 [Concomitant]
     Dosage: 10 DF, QD
     Route: 048
  16. VIGANTOLETTEN [Concomitant]
     Dosage: UNK, QD AM
     Route: 048
  17. MULTIVITAMINS [Concomitant]
     Dosage: UNK, QD PM
     Route: 048
  18. VIANI [Concomitant]
     Dosage: 50 ?G, QD AM
     Route: 055
  19. SPIRIVA [Concomitant]
     Dosage: 18 ?G, BID
     Route: 055
  20. ATROVENT [Concomitant]
     Dosage: UNK, BID
     Route: 055
  21. NOVORAPID [Concomitant]
  22. PROTAPHANE [Concomitant]
     Dosage: 12 DF, QD PM
  23. LANTUS [Concomitant]
     Dosage: 6 DF, QD AM

REACTIONS (1)
  - Rash [Recovered/Resolved]
